FAERS Safety Report 4372774-X (Version None)
Quarter: 2004Q2

REPORT INFORMATION
  Report Type: 
  Country: None (occurrence: None)
  Receive Date: 20040526
  Receipt Date: 20040511
  Transmission Date: 20050107
  Serious: Yes (Death, Life-Threatening, Hospitalization)
  Sender: FDA-Public Use
  Company Number: M04-341-058

PATIENT
  Age: 17 Year
  Sex: Female
  Weight: 68 kg

DRUGS (21)
  1. VELCADE [Suspect]
     Indication: HODGKIN'S DISEASE
     Dosage: 2.3 MG; INTRAVENOUS BOLUS
     Route: 040
     Dates: start: 20040220, end: 20040227
  2. VELCADE [Suspect]
  3. ALL OTHER THERAPEUTIC PRODUCTS [Concomitant]
  4. AMBIEN [Concomitant]
  5. ARANESP [Concomitant]
  6. BACTRIM DS [Concomitant]
  7. CELEXA [Concomitant]
  8. DIGOXIN [Concomitant]
  9. DILAUDID [Concomitant]
  10. ETOPOSIDE [Concomitant]
  11. GRANULOCYTE STIMULATING FACTOR [Concomitant]
  12. HALDOL ^JANSEEN-CILAG^ (HALOPERIDOL) [Concomitant]
  13. KYTRIL [Concomitant]
  14. LEVOSALBUTAMOL [Concomitant]
  15. NEUMEGA [Concomitant]
  16. OXYGEN [Concomitant]
  17. PEPCID [Concomitant]
  18. PREVACID [Concomitant]
  19. SCOPOLAMINE (HYOSCINE) [Concomitant]
  20. VIOXX [Concomitant]
  21. VORICONAZOLE [Concomitant]

REACTIONS (21)
  - BLOOD PRESSURE DECREASED [None]
  - COMA [None]
  - DEPRESSED LEVEL OF CONSCIOUSNESS [None]
  - HEART RATE INCREASED [None]
  - HEPATIC FAILURE [None]
  - HODGKIN'S DISEASE [None]
  - HYPOTONIA [None]
  - INFECTION [None]
  - MALIGNANT NEOPLASM PROGRESSION [None]
  - MASS [None]
  - METASTASES TO LUNG [None]
  - MULTI-ORGAN FAILURE [None]
  - MYDRIASIS [None]
  - PERIPHERAL COLDNESS [None]
  - PLATELET COUNT DECREASED [None]
  - PLEURAL EFFUSION [None]
  - PULSE ABSENT [None]
  - RENAL FAILURE [None]
  - RESPIRATORY DISTRESS [None]
  - RESPIRATORY FAILURE [None]
  - RESPIRATORY RATE INCREASED [None]
